FAERS Safety Report 4372191-2 (Version None)
Quarter: 2004Q2

REPORT INFORMATION
  Report Type: 
  Country: None (occurrence: None)
  Receive Date: 20040607
  Receipt Date: 20040527
  Transmission Date: 20050107
  Serious: Yes (Other)
  Sender: FDA-Public Use
  Company Number: GB-GLAXOSMITHKLINE-B0334149A

PATIENT
  Age: 25 Year
  Sex: Female

DRUGS (5)
  1. SUXAMETHONIUM [Suspect]
     Dosage: 100MG UNKNOWN
     Route: 042
     Dates: start: 20040423, end: 20040423
  2. CYCLIMORPH [Concomitant]
     Route: 042
     Dates: start: 20040323
  3. ATRACURIUM BESYLATE [Concomitant]
     Route: 042
     Dates: start: 20040423
  4. ONDANSETRON [Concomitant]
     Route: 042
     Dates: start: 20040423
  5. THIOPENTONE [Concomitant]
     Route: 042
     Dates: start: 20040423

REACTIONS (3)
  - ANAPHYLACTIC REACTION [None]
  - HEART RATE DECREASED [None]
  - URTICARIA [None]
